FAERS Safety Report 10591838 (Version 2)
Quarter: 2014Q4

REPORT INFORMATION
  Report Type: Spontaneous
  Country: US (occurrence: US)
  Receive Date: 20141118
  Receipt Date: 20141227
  Transmission Date: 20150529
  Serious: Yes (Hospitalization, Other)
  Sender: FDA-Public Use
  Company Number: US-AMGEN-USASL2014088135

PATIENT
  Age: 4 Year
  Sex: Female

DRUGS (1)
  1. ENBREL [Suspect]
     Active Substance: ETANERCEPT
     Indication: JUVENILE IDIOPATHIC ARTHRITIS
     Dosage: 12.5 MG, QWK
     Route: 065
     Dates: start: 20140814

REACTIONS (11)
  - Vomiting [Not Recovered/Not Resolved]
  - Chills [Recovered/Resolved]
  - Headache [Recovered/Resolved]
  - Pain [Not Recovered/Not Resolved]
  - Injection site swelling [Recovered/Resolved]
  - Nausea [Recovered/Resolved]
  - Injection site pruritus [Recovered/Resolved]
  - Kidney infection [Recovered/Resolved]
  - Pyrexia [Not Recovered/Not Resolved]
  - Injection site erythema [Recovered/Resolved]
  - Arthritis [Not Recovered/Not Resolved]

NARRATIVE: CASE EVENT DATE: 2014
